FAERS Safety Report 17784327 (Version 2)
Quarter: 2020Q2

REPORT INFORMATION
  Report Type: Spontaneous
  Country: DK (occurrence: DK)
  Receive Date: 20200514
  Receipt Date: 20200521
  Transmission Date: 20200714
  Serious: Yes (Hospitalization)
  Sender: FDA-Public Use
  Company Number: DK-MYLANLABS-2020M1046811

PATIENT
  Age: 67 Year
  Sex: Female
  Weight: 84.1 kg

DRUGS (2)
  1. NIMORAZOLE [Suspect]
     Active Substance: NIMORAZOLE
     Indication: METASTATIC SQUAMOUS CELL CARCINOMA
     Dosage: UNK
     Route: 065
     Dates: start: 20190205, end: 20190226
  2. CARBOPLATIN. [Suspect]
     Active Substance: CARBOPLATIN
     Indication: METASTATIC SQUAMOUS CELL CARCINOMA
     Dosage: WEEKLY BASIS
     Route: 042
     Dates: start: 20190205, end: 20190227

REACTIONS (7)
  - Deep vein thrombosis [Recovered/Resolved with Sequelae]
  - Pulmonary embolism [Unknown]
  - Vena cava thrombosis [Unknown]
  - Cerebral infarction [Unknown]
  - Lacunar infarction [Unknown]
  - Brain stem infarction [Unknown]
  - Dry gangrene [Recovered/Resolved with Sequelae]

NARRATIVE: CASE EVENT DATE: 2019
